FAERS Safety Report 6234565-4 (Version None)
Quarter: 2009Q2

REPORT INFORMATION
  Report Type: 
  Country: None (occurrence: None)
  Receive Date: 20090618
  Receipt Date: 20090609
  Transmission Date: 20091009
  Serious: Yes (Life-Threatening, Other)
  Sender: FDA-Public Use
  Company Number: US-JNJFOC-20090602124

PATIENT
  Sex: Female
  Weight: 89.36 kg

DRUGS (1)
  1. INFLIXIMAB [Suspect]
     Indication: AUTOIMMUNE DISORDER
     Route: 042

REACTIONS (1)
  - BREAST CANCER [None]
